FAERS Safety Report 24855383 (Version 1)
Quarter: 2025Q1

REPORT INFORMATION
  Report Type: Spontaneous
  Country: US (occurrence: US)
  Receive Date: 20250117
  Receipt Date: 20250117
  Transmission Date: 20250409
  Serious: Yes (Hospitalization, Other)
  Sender: Steriscience PTE
  Company Number: US-STERISCIENCE B.V.-2025-ST-000045

PATIENT

DRUGS (6)
  1. AMPICILLIN [Suspect]
     Active Substance: AMPICILLIN
     Indication: Beta haemolytic streptococcal infection
     Route: 064
  2. AMPICILLIN [Suspect]
     Active Substance: AMPICILLIN
     Indication: Prophylaxis
  3. CEFAZOLIN [Suspect]
     Active Substance: CEFAZOLIN
     Indication: Prophylaxis
     Route: 064
  4. CEFAZOLIN [Suspect]
     Active Substance: CEFAZOLIN
     Indication: Beta haemolytic streptococcal infection
  5. GENTAMICIN [Suspect]
     Active Substance: GENTAMICIN
     Indication: Prophylaxis
     Route: 064
  6. GENTAMICIN [Suspect]
     Active Substance: GENTAMICIN
     Indication: Beta haemolytic streptococcal infection

REACTIONS (3)
  - Premature baby [Unknown]
  - Drug ineffective [Unknown]
  - Foetal exposure during pregnancy [Unknown]
